FAERS Safety Report 16630881 (Version 2)
Quarter: 2019Q3

REPORT INFORMATION
  Report Type: Spontaneous
  Country: US (occurrence: US)
  Receive Date: 20190725
  Receipt Date: 20190829
  Transmission Date: 20191004
  Serious: No
  Sender: FDA-Public Use
  Company Number: US-ASTRAZENECA-2019SE93826

PATIENT
  Age: 77 Year
  Sex: Female
  Weight: 64.9 kg

DRUGS (5)
  1. SYMBICORT [Suspect]
     Active Substance: BUDESONIDE\FORMOTEROL FUMARATE DIHYDRATE
     Indication: HYPERSENSITIVITY
     Dosage: 80/4.5 MCG, 2 PUFFS, TWO TIMES A DAY
     Route: 055
  2. TRAZODONE [Concomitant]
     Active Substance: TRAZODONE HYDROCHLORIDE
     Indication: SLEEP DISORDER
     Route: 065
  3. SYMBICORT [Suspect]
     Active Substance: BUDESONIDE\FORMOTEROL FUMARATE DIHYDRATE
     Indication: CHRONIC OBSTRUCTIVE PULMONARY DISEASE
     Dosage: 80/4.5 MCG, 2 PUFFS, TWO TIMES A DAY
     Route: 055
  4. PANTOPRAZOLE [Concomitant]
     Active Substance: PANTOPRAZOLE
     Route: 048
  5. FLEXERIL [Concomitant]
     Active Substance: CYCLOBENZAPRINE HYDROCHLORIDE
     Indication: MUSCLE RELAXANT THERAPY
     Dosage: 10.0MG AS REQUIRED
     Route: 048

REACTIONS (5)
  - Candida infection [Unknown]
  - Hypersensitivity [Unknown]
  - Wrong technique in product usage process [Unknown]
  - Alopecia [Unknown]
  - Chronic obstructive pulmonary disease [Unknown]
